FAERS Safety Report 20001393 (Version 2)
Quarter: 2022Q2

REPORT INFORMATION
  Report Type: Report from Study
  Country: US (occurrence: US)
  Receive Date: 20211027
  Receipt Date: 20220524
  Transmission Date: 20220720
  Serious: No
  Sender: FDA-Public Use
  Company Number: US-DSJP-DSU-2021-135547

PATIENT
  Age: 38 Year
  Sex: Female

DRUGS (2)
  1. ENHERTU [Suspect]
     Active Substance: FAM-TRASTUZUMAB DERUXTECAN-NXKI
     Indication: Brain neoplasm malignant
     Dosage: 359.68 MG, ONCE EVERY 3 WK
     Route: 042
     Dates: start: 20211019
  2. ENHERTU [Suspect]
     Active Substance: FAM-TRASTUZUMAB DERUXTECAN-NXKI
     Dosage: 368.64 MG, ONCE EVERY 3 WK
     Route: 042
     Dates: start: 20220511

REACTIONS (3)
  - Weight abnormal [Unknown]
  - Weight increased [Unknown]
  - Off label use [Unknown]

NARRATIVE: CASE EVENT DATE: 20211019
